FAERS Safety Report 10036117 (Version 1)
Quarter: 2014Q1

REPORT INFORMATION
  Report Type: Spontaneous
  Country: US (occurrence: None)
  Receive Date: 20140306
  Receipt Date: 20140306
  Transmission Date: 20141002
  Serious: Yes (Hospitalization, Other)
  Sender: FDA-Public Use
  Company Number: 163-21880-12080090

PATIENT
  Age: 68 Year
  Sex: Male
  Weight: 93 kg

DRUGS (7)
  1. REVLIMID (LENALIDOMIDE) (25 MILLIGRAM, CAPSULES) [Suspect]
     Indication: PLASMA CELL MYELOMA
     Dosage: 25 MG, 21 IN 28 D, PO; TEMPORARILY INTERRUPTED
     Route: 048
     Dates: start: 20120324
  2. OXYCODONE (OXYCODONE) [Concomitant]
  3. LISINOPRIL (LISINOPRIL) [Concomitant]
  4. ATENOLOL (ATENOLOL) [Concomitant]
  5. ASA (ACETYLSALICYLIC ACID) [Concomitant]
  6. DECADRON (DEXAMETHASONE) [Concomitant]
  7. HALFPRIN (ACETYLSALICYLIC ACID) [Concomitant]

REACTIONS (5)
  - Ageusia [None]
  - Deep vein thrombosis [None]
  - Fatigue [None]
  - Malaise [None]
  - Drug dose omission [None]
